FAERS Safety Report 11282159 (Version 1)
Quarter: 2015Q3

REPORT INFORMATION
  Report Type: Spontaneous
  Country: FR (occurrence: FR)
  Receive Date: 20150720
  Receipt Date: 20150720
  Transmission Date: 20151125
  Serious: Yes (Hospitalization)
  Sender: FDA-Public Use
  Company Number: FR-009507513-1507FRA005068

PATIENT
  Age: 79 Year
  Sex: Female

DRUGS (5)
  1. ZOPICLONE [Suspect]
     Active Substance: ZOPICLONE
     Dosage: 16 TABLETS
     Route: 048
     Dates: start: 20150613, end: 201506
  2. NORSET [Suspect]
     Active Substance: MIRTAZAPINE
     Dosage: 116 TABLETS
     Route: 048
     Dates: start: 20150613, end: 201506
  3. BROMAZEPAM [Suspect]
     Active Substance: BROMAZEPAM
     Dosage: 30 TABLETS
     Route: 048
     Dates: start: 20150613, end: 201506
  4. LEXOMIL [Suspect]
     Active Substance: BROMAZEPAM
     Dosage: 14 TABLETS OF PAROXETINE AND LEXOMIL
     Route: 048
     Dates: start: 20150613, end: 201506
  5. PAROXETINE [Suspect]
     Active Substance: PAROXETINE\PAROXETINE HYDROCHLORIDE
     Dosage: 14 TABLETS OF PAROXETINE AND LEXOMIL
     Route: 048
     Dates: start: 20150613, end: 201506

REACTIONS (2)
  - Coma [Recovered/Resolved]
  - Rhabdomyolysis [Recovered/Resolved]

NARRATIVE: CASE EVENT DATE: 20150613
